FAERS Safety Report 8599293-9 (Version None)
Quarter: 2012Q3

REPORT INFORMATION
  Report Type: 
  Country: None (occurrence: None)
  Receive Date: 20120816
  Receipt Date: 20120803
  Transmission Date: 20120928
  Serious: Yes (Hospitalization)
  Sender: FDA-Public Use
  Company Number: US-ENDO PHARMACEUTICALS INC.-OPCR20121731

PATIENT
  Age: 38 Year
  Sex: Female

DRUGS (2)
  1. OPANA ER [Suspect]
     Indication: PAIN
     Route: 048
     Dates: start: 20120601
  2. OPANA ER [Concomitant]
     Route: 048
     Dates: start: 20110101, end: 20120601

REACTIONS (2)
  - CHEST DISCOMFORT [None]
  - PRURITUS [None]
